FAERS Safety Report 6176971-2 (Version None)
Quarter: 2009Q2

REPORT INFORMATION
  Report Type: 
  Country: None (occurrence: None)
  Receive Date: 20090501
  Receipt Date: 20090422
  Transmission Date: 20091009
  Serious: Yes (Other)
  Sender: FDA-Public Use
  Company Number: US-AMGEN-KDL341894

PATIENT
  Sex: Female

DRUGS (2)
  1. ENBREL [Suspect]
     Indication: PSORIASIS
     Route: 058
     Dates: start: 20081101
  2. EX-LAX [Concomitant]

REACTIONS (4)
  - ECZEMA ASTEATOTIC [None]
  - ORAL HERPES [None]
  - PUSTULAR PSORIASIS [None]
  - TRANSIENT ACANTHOLYTIC DERMATOSIS [None]
